FAERS Safety Report 8470785-6 (Version None)
Quarter: 2012Q2

REPORT INFORMATION
  Report Type: 
  Country: None (occurrence: None)
  Receive Date: 20120627
  Receipt Date: 20120625
  Transmission Date: 20120825
  Serious: Yes (Other)
  Sender: FDA-Public Use
  Company Number: US-PFIZER INC-2012153265

PATIENT
  Sex: Female
  Weight: 56.689 kg

DRUGS (6)
  1. GEODON [Suspect]
     Dosage: UNK
  2. AMBIEN [Concomitant]
     Dosage: 10 MG, DAILY
  3. GEODON [Suspect]
     Indication: BIPOLAR I DISORDER
     Dosage: 60 MG, UNK
     Dates: start: 20010101
  4. LITHIUM CARBONATE [Suspect]
     Dosage: UNK
     Dates: start: 19840101, end: 20110515
  5. ZOLOFT [Suspect]
     Indication: MENTAL DISORDER
     Dosage: 100 MG, DAILY
  6. GEODON [Suspect]
     Indication: BIPOLAR DISORDER
     Dosage: 40 MG, 2X/DAY

REACTIONS (1)
  - DEAFNESS [None]
